FAERS Safety Report 9402315 (Version 1)
Quarter: 2013Q3

REPORT INFORMATION
  Report Type: Spontaneous
  Country: BR (occurrence: BR)
  Receive Date: 20130716
  Receipt Date: 20130716
  Transmission Date: 20140515
  Serious: Yes (Other)
  Sender: FDA-Public Use
  Company Number: BR-PFIZER INC-2013207111

PATIENT
  Age: 55 Year
  Sex: Female
  Weight: 85 kg

DRUGS (6)
  1. FRONTAL XR [Suspect]
     Indication: ANXIETY
     Dosage: 1 TABLET (0.5 MG), TWICE A DAY
     Route: 048
     Dates: start: 20120712, end: 20130112
  2. FRONTAL XR [Suspect]
     Indication: DEPRESSION
  3. ZOLOFT [Suspect]
     Indication: DEPRESSION
     Dosage: 1 TABLET (100 MG), ONCE A DAY
     Route: 048
     Dates: start: 20111130
  4. BENICAR [Concomitant]
     Indication: BLOOD PRESSURE INCREASED
     Dosage: 1 TABLET (20MG) , 2X/DAY
  5. DIUPRESS [Concomitant]
     Indication: BLOOD PRESSURE INCREASED
     Dosage: 1 TABLET (^25 PLUS 5^, UNSPECIFIED UNIT), 1X/DAY
  6. NOVANLO [Concomitant]
     Indication: BLOOD PRESSURE INCREASED
     Dosage: 1 TABLET (2.5MG, UNSPECIFIED UNIT), ONCE A DAY

REACTIONS (4)
  - Off label use [Unknown]
  - Anxiety [Unknown]
  - Depression [Unknown]
  - Blood pressure increased [Not Recovered/Not Resolved]
